FAERS Safety Report 6317833-7 (Version None)
Quarter: 2009Q3

REPORT INFORMATION
  Report Type: 
  Country: None (occurrence: None)
  Receive Date: 20090821
  Receipt Date: 20090603
  Transmission Date: 20100115
  Serious: No
  Sender: FDA-Public Use
  Company Number: US-BAYER-200922768NA

PATIENT
  Age: 35 Year
  Sex: Female
  Weight: 61 kg

DRUGS (2)
  1. MIRENA [Suspect]
     Indication: CONTRACEPTION
     Dosage: CONTINUOUS DELIVERY
     Route: 015
     Dates: start: 20090508
  2. ADVIL [Concomitant]

REACTIONS (7)
  - ABDOMINAL PAIN LOWER [None]
  - ACNE [None]
  - BREAST TENDERNESS [None]
  - FLUID RETENTION [None]
  - INCREASED APPETITE [None]
  - TENSION HEADACHE [None]
  - VAGINAL HAEMORRHAGE [None]
